FAERS Safety Report 7498638-0 (Version None)
Quarter: 2011Q2

REPORT INFORMATION
  Report Type: 
  Country: None (occurrence: None)
  Receive Date: 20110524
  Receipt Date: 20110511
  Transmission Date: 20111010
  Serious: Yes (Other)
  Sender: FDA-Public Use
  Company Number: CA-ELI_LILLY_AND_COMPANY-CA201105003009

PATIENT
  Sex: Female

DRUGS (5)
  1. TEGRETOL [Concomitant]
  2. ORAP [Concomitant]
  3. ZYPREXA [Suspect]
     Dosage: 10 MG, EACH EVENING
     Dates: start: 19980427
  4. LOXAPINE HCL [Concomitant]
  5. ZYPREXA [Suspect]
     Dosage: 5 MG, UNK
     Dates: start: 19980325

REACTIONS (3)
  - CEREBROVASCULAR ACCIDENT [None]
  - HYPERTENSION [None]
  - DIABETES MELLITUS [None]
